FAERS Safety Report 4848158-4 (Version None)
Quarter: 2005Q4

REPORT INFORMATION
  Report Type: 
  Country: None (occurrence: None)
  Receive Date: 20051116
  Receipt Date: 20050330
  Transmission Date: 20060501
  Serious: Yes (Other)
  Sender: FDA-Public Use
  Company Number: HQWYE786707APR05

PATIENT
  Sex: Female
  Weight: 51.3 kg

DRUGS (1)
  1. ADVIL COLD AND SINUS [Suspect]
     Dosage: ORAL
     Route: 048

REACTIONS (2)
  - HEART RATE INCREASED [None]
  - UNEVALUABLE EVENT [None]
